FAERS Safety Report 5051278-5 (Version None)
Quarter: 2006Q3

REPORT INFORMATION
  Report Type: 
  Country: None (occurrence: None)
  Receive Date: 20060714
  Receipt Date: 20060710
  Transmission Date: 20061208
  Serious: Yes (Death, Life-Threatening)
  Sender: FDA-Public Use
  Company Number: FR-AVENTIS-200612448FR

PATIENT
  Age: 78 Year
  Sex: Male

DRUGS (7)
  1. LASILIX [Suspect]
     Indication: DRUG USE FOR UNKNOWN INDICATION
     Route: 048
     Dates: end: 20060616
  2. ALDACTONE [Suspect]
     Indication: DRUG USE FOR UNKNOWN INDICATION
     Route: 048
     Dates: start: 20060427, end: 20060616
  3. COVERSYL [Suspect]
     Indication: DRUG USE FOR UNKNOWN INDICATION
     Route: 048
     Dates: end: 20060616
  4. ADANCOR [Concomitant]
     Indication: ANGINA PECTORIS
     Route: 048
     Dates: end: 20060616
  5. TAHOR [Concomitant]
     Route: 048
     Dates: end: 20060616
  6. DISCOTRINE [Concomitant]
     Indication: ANGINA PECTORIS
     Route: 048
  7. ALLOPURINOL [Concomitant]
     Route: 048
     Dates: end: 20060616

REACTIONS (7)
  - CARDIAC ARREST [None]
  - ELECTROCARDIOGRAM QRS COMPLEX PROLONGED [None]
  - GENERAL PHYSICAL HEALTH DETERIORATION [None]
  - HYPERKALAEMIA [None]
  - MALAISE [None]
  - RENAL FAILURE ACUTE [None]
  - SHOCK [None]
